FAERS Safety Report 11876605 (Version 2)
Quarter: 2016Q1

REPORT INFORMATION
  Report Type: Spontaneous
  Country: NL (occurrence: NL)
  Receive Date: 20151229
  Receipt Date: 20160127
  Transmission Date: 20160526
  Serious: Yes (Death)
  Sender: FDA-Public Use
  Company Number: NL-TOLMAR, INC.-2015NL011557

PATIENT
  Sex: Male

DRUGS (11)
  1. MELATONIN [Concomitant]
     Active Substance: MELATONIN
  2. EXELON [Concomitant]
     Active Substance: RIVASTIGMINE TARTRATE
  3. EBIXA [Concomitant]
     Active Substance: MEMANTINE HYDROCHLORIDE
  4. PROSCAR [Concomitant]
     Active Substance: FINASTERIDE
  5. ELIGARD [Suspect]
     Active Substance: LEUPROLIDE ACETATE
     Indication: PROSTATE CANCER
     Dosage: 45 MG, EVERY SIX MONTHS
     Route: 058
     Dates: start: 20131001
  6. MOVICOLON [Concomitant]
     Active Substance: POLYETHYLENE GLYCOL 3350\POTASSIUM CHLORIDE\SODIUM BICARBONATE\SODIUM CHLORIDE
  7. ELIGARD [Suspect]
     Active Substance: LEUPROLIDE ACETATE
     Dosage: 45 MG, EVERY SIX MONTHS
     Route: 058
     Dates: start: 20150326
  8. FOLIC ACID. [Concomitant]
     Active Substance: FOLIC ACID
  9. RISPERDAL [Concomitant]
     Active Substance: RISPERIDONE
  10. CALCI CHEW D3 [Concomitant]
     Active Substance: CALCIUM CARBONATE\CHOLECALCIFEROL
  11. ELIGARD [Suspect]
     Active Substance: LEUPROLIDE ACETATE
     Dosage: 45 MG, EVERY SIX MONTHS
     Route: 058
     Dates: start: 20151002

REACTIONS (1)
  - Death [Fatal]
